FAERS Safety Report 14558994 (Version 2)
Quarter: 2018Q1

REPORT INFORMATION
  Report Type: Spontaneous
  Country: PL (occurrence: PL)
  Receive Date: 20180221
  Receipt Date: 20180228
  Transmission Date: 20180509
  Serious: Yes (Hospitalization)
  Sender: FDA-Public Use
  Company Number: PL-TEVA-2018-PL-859415

PATIENT
  Age: 63 Year
  Sex: Male

DRUGS (1)
  1. OXYCODONE [Suspect]
     Active Substance: OXYCODONE
     Indication: PAIN
     Dosage: 160 MILLIGRAM DAILY;

REACTIONS (2)
  - Constipation [Recovered/Resolved]
  - Functional gastrointestinal disorder [Recovered/Resolved]
